FAERS Safety Report 4933484-0 (Version None)
Quarter: 2006Q1

REPORT INFORMATION
  Report Type: 
  Country: None (occurrence: None)
  Receive Date: 20060306
  Receipt Date: 20051207
  Transmission Date: 20060701
  Serious: Yes (Hospitalization)
  Sender: FDA-Public Use
  Company Number: US-MERCK-0512USA01358

PATIENT
  Age: 71 Year
  Sex: Female
  Weight: 94 kg

DRUGS (6)
  1. NORVASC [Concomitant]
     Route: 048
  2. ZIAC [Concomitant]
     Route: 048
  3. PRILOSEC [Concomitant]
     Route: 048
  4. LIBRAX CAPSULES [Concomitant]
     Route: 048
  5. IBUPROFEN [Concomitant]
     Route: 048
  6. VIOXX [Suspect]
     Route: 048

REACTIONS (17)
  - BLOOD GLUCOSE INCREASED [None]
  - CEREBROVASCULAR ACCIDENT [None]
  - CEREBROVASCULAR DISORDER [None]
  - DIABETES MELLITUS [None]
  - DIARRHOEA [None]
  - DRY MOUTH [None]
  - FALL [None]
  - HYPERTENSION [None]
  - HYPOKALAEMIA [None]
  - ILEUS [None]
  - MUSCULOSKELETAL CHEST PAIN [None]
  - NAUSEA [None]
  - NOCTURIA [None]
  - OBESITY [None]
  - OEDEMA PERIPHERAL [None]
  - SMALL INTESTINAL OBSTRUCTION [None]
  - URINARY TRACT INFECTION [None]
